FAERS Safety Report 5533986-2 (Version None)
Quarter: 2007Q4

REPORT INFORMATION
  Report Type: 
  Country: None (occurrence: None)
  Receive Date: 20071130
  Receipt Date: 20071114
  Transmission Date: 20080405
  Serious: Yes (Other)
  Sender: FDA-Public Use
  Company Number: 2007US002861

PATIENT
  Age: 57 Year
  Sex: Female

DRUGS (9)
  1. PROTOPIC [Suspect]
     Indication: GENITAL EROSION
     Dosage: BID, TOPICAL
     Route: 061
  2. CEFDINIR [Concomitant]
  3. DOXYCYCLINE (DOXYCYCLONE HYCLATE) [Concomitant]
  4. NICOTINAMIDE [Concomitant]
  5. DAPSONE [Concomitant]
  6. HALOBETASOL PROPIONATE, 0.05% [Concomitant]
  7. TRIAMCINOLONE ACETONIDE [Concomitant]
  8. PREDNISOLONE ACETATE [Concomitant]
  9. METHOTREXATE [Concomitant]

REACTIONS (14)
  - ACTIVITIES OF DAILY LIVING IMPAIRED [None]
  - BACTERIAL INFECTION [None]
  - DRUG INEFFECTIVE FOR UNAPPROVED INDICATION [None]
  - ERYTHEMA [None]
  - FACTOR V LEIDEN MUTATION [None]
  - GENERAL PHYSICAL HEALTH DETERIORATION [None]
  - GENITAL EROSION [None]
  - GENITAL HERPES [None]
  - GENITAL INFECTION VIRAL [None]
  - GENITAL PAIN [None]
  - HERPES SIMPLEX [None]
  - ORAL CANDIDIASIS [None]
  - PEMPHIGOID [None]
  - PEMPHIGUS [None]
